FAERS Safety Report 17667300 (Version 1)
Quarter: 2020Q2

REPORT INFORMATION
  Report Type: Other
  Country: CZ (occurrence: CZ)
  Receive Date: 20200414
  Receipt Date: 20200414
  Transmission Date: 20200713
  Serious: Yes (Other)
  Sender: FDA-Public Use
  Company Number: CZ-EMD SERONO-9156895

PATIENT
  Age: 73 Year
  Sex: Male

DRUGS (11)
  1. METFORMIN [Suspect]
     Active Substance: METFORMIN HYDROCHLORIDE
     Indication: DIABETES MELLITUS
     Dosage: UNKNOWN DOSAGE
  2. METFORMIN [Suspect]
     Active Substance: METFORMIN HYDROCHLORIDE
     Dosage: TITRATED TO A DAILY DOSE OF 2000 MG
     Dates: start: 199901, end: 201510
  3. INSULINE ASPARTATE [Concomitant]
     Dosage: DOSE: 12 U IN MORNING, 10 U IN AFTERNOON AND NIGHT
     Dates: end: 2016
  4. INSULINE ASPARTATE [Concomitant]
     Dosage: DOSE: 8 U IN MORNING, 10 U IN AFTERNOON AND 12 U IN NIGHT
     Dates: start: 2016
  5. INSULINE ASPARTATE [Concomitant]
     Dosage: DOSE: 9 U IN MORNING, 10 U IN AFTERNOON AND NIGHT
     Dates: start: 201406
  6. INSULIN DETEMIR [Concomitant]
     Active Substance: INSULIN DETEMIR
     Indication: DIABETES MELLITUS
     Dosage: UNIT DOSE: 18 U
     Dates: start: 201310
  7. GLIMEPIRIDE. [Concomitant]
     Active Substance: GLIMEPIRIDE
     Indication: DIABETES MELLITUS
     Dates: end: 201404
  8. SITAGLIPTIN [Concomitant]
     Active Substance: SITAGLIPTIN
     Indication: DIABETES MELLITUS
     Dates: start: 200811, end: 201311
  9. INSULIN DETEMIR [Concomitant]
     Active Substance: INSULIN DETEMIR
     Dosage: UNIT DOSE: 18 U
     Dates: start: 201404, end: 201601
  10. INSULINE ASPARTATE [Concomitant]
     Indication: DIABETES MELLITUS
     Dosage: UNIT DOSE: 5 U
     Dates: start: 201404, end: 201406
  11. GLICLAZIDE [Concomitant]
     Active Substance: GLICLAZIDE
     Indication: DIABETES MELLITUS
     Dates: start: 200506, end: 2013

REACTIONS (3)
  - Diabetes mellitus inadequate control [Recovered/Resolved]
  - Hypoglycaemia [Unknown]
  - Renal failure [Unknown]
